FAERS Safety Report 24177181 (Version 1)
Quarter: 2024Q3

REPORT INFORMATION
  Report Type: Spontaneous
  Country: US (occurrence: US)
  Receive Date: 20240806
  Receipt Date: 20240806
  Transmission Date: 20241016
  Serious: Yes (Other)
  Sender: AMNEAL
  Company Number: US-AMNEAL-2024-AMRX-01976

PATIENT
  Age: 46 Year
  Sex: Female

DRUGS (2)
  1. BACLOFEN [Suspect]
     Active Substance: BACLOFEN
     Indication: Product used for unknown indication
     Dosage: 500MCG/ML, 123.91 MCG/DAY
     Route: 037
  2. BACLOFEN [Suspect]
     Active Substance: BACLOFEN
     Dosage: 2000MCG/ML, 117MCG/DAY
     Route: 037

REACTIONS (3)
  - Symptom recurrence [Recovered/Resolved]
  - Device kink [Unknown]
  - Device dislocation [Unknown]

NARRATIVE: CASE EVENT DATE: 20230825
